FAERS Safety Report 13930777 (Version 1)
Quarter: 2017Q3

REPORT INFORMATION
  Report Type: Spontaneous
  Country: HU (occurrence: HU)
  Receive Date: 20170901
  Receipt Date: 20170901
  Transmission Date: 20171127
  Serious: Yes (Death)
  Sender: FDA-Public Use
  Company Number: HU-B.I. PHARMACEUTICALS,INC./RIDGEFIELD-2017-BI-047693

PATIENT
  Age: 67 Year
  Sex: Female

DRUGS (2)
  1. LITICARB [Concomitant]
     Active Substance: LITHIUM CARBONATE
     Indication: HYPERTHYROIDISM
     Route: 065
     Dates: start: 201704
  2. PRAXBIND [Suspect]
     Active Substance: IDARUCIZUMAB
     Indication: HAEMORRHAGE INTRACRANIAL
     Route: 065

REACTIONS (1)
  - Brain stem syndrome [Fatal]

NARRATIVE: CASE EVENT DATE: 201704
